FAERS Safety Report 18270076 (Version 3)
Quarter: 2020Q3

REPORT INFORMATION
  Report Type: Spontaneous
  Country: GB (occurrence: GB)
  Receive Date: 20200915
  Receipt Date: 20200929
  Transmission Date: 20201103
  Serious: Yes (Hospitalization, Other)
  Sender: FDA-Public Use
  Company Number: GB-MYLANLABS-2020M1078187

PATIENT
  Age: 16 Month
  Sex: Female

DRUGS (7)
  1. LEVETIRACETAM. [Suspect]
     Active Substance: LEVETIRACETAM
     Indication: INFANTILE SPASMS
     Dosage: 60 MILLIGRAM/KILOGRAM, QD
     Route: 065
  2. CLOBAZAM. [Suspect]
     Active Substance: CLOBAZAM
     Indication: INFANTILE SPASMS
     Dosage: UNK
     Route: 065
  3. OXYGEN. [Concomitant]
     Active Substance: OXYGEN
     Dosage: UNK
  4. LEVETIRACETAM. [Interacting]
     Active Substance: LEVETIRACETAM
     Dosage: 30 MILLIGRAM/KILOGRAM, QD
     Route: 065
  5. SABRIL [Interacting]
     Active Substance: VIGABATRIN
     Indication: SEIZURE
     Dosage: 120 MG/KG, QD
     Route: 065
  6. CLONAZEPAM. [Interacting]
     Active Substance: CLONAZEPAM
     Indication: SEIZURE
     Dosage: 100 MICROGRAM/KILOGRAM, QD
     Route: 065
  7. CEFUROXIME. [Concomitant]
     Active Substance: CEFUROXIME
     Dosage: UNK

REACTIONS (8)
  - Bronchiolitis [Unknown]
  - Swelling face [Unknown]
  - Drug interaction [Recovered/Resolved]
  - Seizure [Unknown]
  - Somnolence [Recovered/Resolved]
  - Coma blister [Recovered/Resolved]
  - Blister [Recovered/Resolved]
  - Respiratory syncytial virus bronchiolitis [Unknown]
